FAERS Safety Report 19868882 (Version 2)
Quarter: 2021Q3

REPORT INFORMATION
  Report Type: Spontaneous
  Country: IT (occurrence: IT)
  Receive Date: 20210922
  Receipt Date: 20210930
  Transmission Date: 20211014
  Serious: Yes (Other)
  Sender: FDA-Public Use
  Company Number: IT-PFIZER INC-202101221928

PATIENT
  Age: 27 Day
  Sex: Male

DRUGS (4)
  1. ZOFRAN [Concomitant]
     Active Substance: ONDANSETRON HYDROCHLORIDE
     Dosage: 8 MG, 1X/DAY
  2. DECADRON [Concomitant]
     Active Substance: DEXAMETHASONE
     Dosage: 4 MG, 1X/DAY
  3. VINCRISTINE SULFATE. [Suspect]
     Active Substance: VINCRISTINE SULFATE
     Indication: ASTROCYTOMA
     Dosage: 0.96 MG, CYCLIC
     Route: 042
     Dates: start: 20210611, end: 20210611
  4. ANTRA [OMEPRAZOLE] [Concomitant]
     Active Substance: OMEPRAZOLE
     Dosage: 15 MG, 1X/DAY

REACTIONS (4)
  - Aphthous ulcer [Recovered/Resolved]
  - Neutropenia neonatal [Recovered/Resolved]
  - Off label use [Recovered/Resolved]
  - Fever neonatal [Recovered/Resolved]

NARRATIVE: CASE EVENT DATE: 20210612
